FAERS Safety Report 15504535 (Version 1)
Quarter: 2018Q4

REPORT INFORMATION
  Report Type: Spontaneous
  Country: US (occurrence: US)
  Receive Date: 20181009
  Receipt Date: 20181009
  Transmission Date: 20190205
  Serious: Yes (Hospitalization)
  Sender: FDA-Public Use
  Company Number: None

PATIENT
  Age: 14 Year
  Sex: Female
  Weight: 36 kg

DRUGS (5)
  1. FUROSEMIDE ORAL SOLUTION USP 10MG/ML [Suspect]
     Active Substance: FUROSEMIDE
     Indication: POSTOPERATIVE CARE
     Dosage: ?          QUANTITY:2 OUNCE(S);?
     Route: 048
     Dates: start: 20180621, end: 20180701
  2. FUROSEMIDE ORAL SOLUTION USP 10MG/ML [Suspect]
     Active Substance: FUROSEMIDE
     Indication: CARDIAC OPERATION
     Dosage: ?          QUANTITY:2 OUNCE(S);?
     Route: 048
     Dates: start: 20180621, end: 20180701
  3. HUMATROPE [Concomitant]
     Active Substance: SOMATROPIN
  4. ESTROGEN [Concomitant]
     Active Substance: ESTROGENS
  5. MULTIVITAMIN GUMMY [Concomitant]

REACTIONS (5)
  - Liquid product physical issue [None]
  - Product label issue [None]
  - Pleural effusion [None]
  - Drug ineffective [None]
  - Poor quality product administered [None]

NARRATIVE: CASE EVENT DATE: 20180625
